FAERS Safety Report 6535384-1 (Version None)
Quarter: 2010Q1

REPORT INFORMATION
  Report Type: 
  Country: None (occurrence: None)
  Receive Date: 20100105
  Receipt Date: 20091221
  Transmission Date: 20100710
  Serious: Yes (Hospitalization)
  Sender: FDA-Public Use
  Company Number: 2009003912

PATIENT
  Age: 73 Year
  Sex: Female

DRUGS (2)
  1. ERLOTINIB HYDROCHLORIDE [Suspect]
     Indication: BRONCHIOLOALVEOLAR CARCINOMA
     Dosage: (50 MG,QD), ORAL
     Route: 048
     Dates: start: 20091103
  2. BEVACIZUMAB (INJECTION FOR INFUSION) (15 MG/KG, Q3W), INTRAVENOUS [Suspect]
     Indication: BRONCHIOLOALVEOLAR CARCINOMA
     Dosage: (15 MG/KG, Q3W), INTRAVENOUS
     Route: 042
     Dates: start: 20091103

REACTIONS (6)
  - BRONCHIOLOALVEOLAR CARCINOMA [None]
  - DYSPNOEA [None]
  - FATIGUE [None]
  - HYPOXIA [None]
  - LUNG INFILTRATION [None]
  - MALIGNANT NEOPLASM PROGRESSION [None]
